FAERS Safety Report 9794576 (Version 3)
Quarter: 2014Q1

REPORT INFORMATION
  Report Type: Spontaneous
  Country: US (occurrence: US)
  Receive Date: 20140102
  Receipt Date: 20140324
  Transmission Date: 20141002
  Serious: Yes (Hospitalization)
  Sender: FDA-Public Use
  Company Number: US-UCBSA-102127

PATIENT
  Age: 55 Year
  Sex: Male
  Weight: 63.49 kg

DRUGS (9)
  1. CIMZIA [Suspect]
     Indication: CROHN^S DISEASE
     Route: 058
     Dates: end: 20140104
  2. CIMZIA [Suspect]
     Indication: CROHN^S DISEASE
     Route: 030
     Dates: start: 20131009, end: 2013
  3. COUMADIN [Concomitant]
     Indication: PULMONARY EMBOLISM
     Dosage: 2 MG AND 3 MG ALTERNATING DAYS
     Route: 048
     Dates: start: 201312
  4. MAGNESIUM [Concomitant]
     Indication: MINERAL SUPPLEMENTATION
     Dosage: ONCE A DAY
     Route: 048
  5. OMEPRAZOLE [Concomitant]
     Indication: SUPPLEMENTATION THERAPY
     Dosage: ONCE A DAY
     Route: 048
  6. STOOL SOFTENER [Concomitant]
     Indication: CONSTIPATION
     Dosage: ONCE A DAY
     Route: 048
  7. CALCIUM [Concomitant]
     Indication: MINERAL SUPPLEMENTATION
     Dosage: ONCE A DAY
     Route: 048
  8. POTASSIUM [Concomitant]
     Indication: MINERAL SUPPLEMENTATION
     Dosage: ONCE A DAY
     Route: 048
  9. LOVENOX [Concomitant]
     Indication: PULMONARY EMBOLISM

REACTIONS (5)
  - Pulmonary embolism [Recovered/Resolved]
  - Lethargy [Recovered/Resolved]
  - Dyspnoea [Recovered/Resolved]
  - Incorrect route of drug administration [Recovered/Resolved]
  - Drug ineffective [Recovered/Resolved]
